FAERS Safety Report 6297718-5 (Version None)
Quarter: 2009Q3

REPORT INFORMATION
  Report Type: 
  Country: None (occurrence: None)
  Receive Date: 20090805
  Receipt Date: 20090729
  Transmission Date: 20100115
  Serious: Yes (Hospitalization)
  Sender: FDA-Public Use
  Company Number: ZA-ROCHE-633183

PATIENT
  Age: 17 Year
  Sex: Male

DRUGS (5)
  1. ROACCUTANE [Suspect]
     Indication: ACNE
     Route: 048
  2. ROACCUTANE [Suspect]
     Dosage: DOSE LOWERED.
     Route: 048
  3. ROACCUTANE [Suspect]
     Dosage: DOSE INCREASED
     Route: 048
  4. CORTISONE [Suspect]
     Route: 048
  5. PULMISON [Suspect]
     Dosage: DOSE, FREQUENCY UNSPECIFIED.
     Route: 048

REACTIONS (3)
  - ABDOMINAL PAIN [None]
  - ACNE [None]
  - OSTEONECROSIS [None]
